FAERS Safety Report 6261744-2 (Version None)
Quarter: 2009Q3

REPORT INFORMATION
  Report Type: 
  Country: None (occurrence: None)
  Receive Date: 20090707
  Receipt Date: 20090707
  Transmission Date: 20100115
  Serious: Yes (Life-Threatening, Hospitalization)
  Sender: FDA-Public Use
  Company Number: None

PATIENT
  Age: 73 Year
  Sex: Female
  Weight: 113.3993 kg

DRUGS (1)
  1. COREG CR [Suspect]
     Indication: CARDIAC FAILURE
     Dosage: 80 MG 1 A DAY
     Dates: start: 20090225, end: 20090225

REACTIONS (3)
  - ATRIAL FIBRILLATION [None]
  - CHEST DISCOMFORT [None]
  - PULMONARY OEDEMA [None]
